FAERS Safety Report 5548432-2 (Version None)
Quarter: 2007Q4

REPORT INFORMATION
  Report Type: 
  Country: None (occurrence: None)
  Receive Date: 20071211
  Receipt Date: 20071210
  Transmission Date: 20080405
  Serious: Yes (Life-Threatening)
  Sender: FDA-Public Use
  Company Number: JP-GENENTECH-248752

PATIENT
  Age: 82 Year
  Sex: Female

DRUGS (3)
  1. ACTIVACIN [Suspect]
     Indication: CEREBRAL ARTERY EMBOLISM
     Dosage: 24 MG, UNK
     Route: 042
     Dates: start: 20070609, end: 20070609
  2. RADICUT [Suspect]
     Indication: CEREBRAL ARTERY EMBOLISM
     Dosage: 30 MG, UNK
     Route: 042
     Dates: start: 20070609, end: 20070609
  3. WARFARIN POTASSIUM [Concomitant]
     Indication: PROPHYLAXIS
     Route: 048

REACTIONS (2)
  - DISSEMINATED INTRAVASCULAR COAGULATION [None]
  - MULTI-ORGAN FAILURE [None]
